FAERS Safety Report 8542011-0 (Version None)
Quarter: 2012Q3

REPORT INFORMATION
  Report Type: 
  Country: None (occurrence: None)
  Receive Date: 20120726
  Receipt Date: 20110930
  Transmission Date: 20120928
  Serious: No
  Sender: FDA-Public Use
  Company Number: US-ASTRAZENECA-2011SE59089

PATIENT
  Age: 32 Year
  Sex: Female
  Weight: 49.9 kg

DRUGS (4)
  1. SEROQUEL XR [Suspect]
     Route: 048
     Dates: start: 20110927
  2. SIBAXIN [Concomitant]
  3. SEROQUEL XR [Suspect]
     Indication: BIPOLAR DISORDER
     Route: 048
     Dates: start: 20110801
  4. GABAPENTIN [Concomitant]

REACTIONS (4)
  - ANXIETY [None]
  - MOOD SWINGS [None]
  - VOMITING [None]
  - DRUG DOSE OMISSION [None]
